FAERS Safety Report 8598601 (Version 2)
Quarter: 2014Q1

REPORT INFORMATION
  Report Type: Spontaneous
  Country: US (occurrence: None)
  Receive Date: 20120323
  Receipt Date: 20130305
  Transmission Date: 20141002
  Serious: Yes (Hospitalization)
  Sender: FDA-Public Use
  Company Number: 163-21880-11123248

PATIENT
  Age: 76 Year
  Sex: Male

DRUGS (4)
  1. REVLIMID [Suspect]
     Indication: PLASMA CELL MYELOMA
     Dosage: 25 MG, DAILY X 21 DAYS Q 28 28 DAYS, PO
     Route: 048
     Dates: start: 20111201, end: 20111219
  2. POTASSIUM [Concomitant]
  3. MAG OXIDE [Concomitant]
  4. LASIX (FUROSEMIDE) [Concomitant]

REACTIONS (3)
  - Pneumonia [None]
  - Renal failure acute [None]
  - Cardiac failure congestive [None]
